FAERS Safety Report 26174893 (Version 1)
Quarter: 2025Q4

REPORT INFORMATION
  Report Type: Spontaneous
  Country: US (occurrence: None)
  Receive Date: 20251217
  Receipt Date: 20251217
  Transmission Date: 20260117
  Serious: No
  Sender: FDA-CTU
  Company Number: None

PATIENT
  Age: 31 Year
  Sex: Female
  Weight: 68.85 kg

DRUGS (1)
  1. COSMETICS [Suspect]
     Active Substance: COSMETICS
     Indication: Dry skin
     Dosage: OTHER QUANTITY : 30 PATCH(ES)?OTHER FREQUENCY : AS NEEDED
     Route: 061

REACTIONS (7)
  - Burning sensation [None]
  - Pruritus [None]
  - Pruritus [None]
  - Application site erythema [None]
  - Thermal burn [None]
  - Skin exfoliation [None]
  - Skin irritation [None]

NARRATIVE: CASE EVENT DATE: 20251213
